FAERS Safety Report 13920361 (Version 1)
Quarter: 2017Q3

REPORT INFORMATION
  Report Type: Spontaneous
  Country: US (occurrence: US)
  Receive Date: 20170830
  Receipt Date: 20170830
  Transmission Date: 20171127
  Serious: Yes (Hospitalization, Other)
  Sender: FDA-Public Use
  Company Number: US-APOTEX-2017AP017365

PATIENT
  Age: 61 Year
  Sex: Male

DRUGS (4)
  1. FLUCONAZOLE TABLETS [Suspect]
     Active Substance: FLUCONAZOLE
     Indication: ERYTHRASMA
  2. ERYTHROMYCIN. [Suspect]
     Active Substance: ERYTHROMYCIN
     Indication: ERYTHRASMA
     Route: 048
  3. ERYTHROMYCIN. [Suspect]
     Active Substance: ERYTHROMYCIN
     Indication: SKIN CANDIDA
  4. FLUCONAZOLE TABLETS [Suspect]
     Active Substance: FLUCONAZOLE
     Indication: SKIN CANDIDA
     Route: 048

REACTIONS (9)
  - Multiple organ dysfunction syndrome [Recovered/Resolved]
  - Drug level increased [Unknown]
  - Acute generalised exanthematous pustulosis [Recovered/Resolved]
  - Potentiating drug interaction [Unknown]
  - Shock [Recovered/Resolved]
  - Ischaemic hepatitis [Recovered/Resolved]
  - Metabolic acidosis [Recovered/Resolved]
  - Acute kidney injury [Recovered/Resolved]
  - Respiratory acidosis [Recovered/Resolved]
